FAERS Safety Report 10440639 (Version 1)
Quarter: 2014Q3

REPORT INFORMATION
  Report Type: Spontaneous
  Country: US (occurrence: None)
  Receive Date: 20140905
  Receipt Date: 20140905
  Transmission Date: 20150326
  Serious: No
  Sender: FDA-Public Use
  Company Number: None

PATIENT
  Age: 92 Year
  Sex: Female
  Weight: 48.99 kg

DRUGS (10)
  1. IBANDRONATE [Concomitant]
     Active Substance: IBANDRONATE SODIUM
  2. VESICARE [Concomitant]
     Active Substance: SOLIFENACIN SUCCINATE
  3. FUROSEMIDE. [Concomitant]
     Active Substance: FUROSEMIDE
  4. DEPAKOTE ER [Concomitant]
     Active Substance: DIVALPROEX SODIUM
  5. MYRBETRIQ [Suspect]
     Active Substance: MIRABEGRON
     Indication: DRY MOUTH
     Dosage: 1 PILL ONCE DAILY MOUTH
     Route: 048
     Dates: start: 20140313, end: 20140322
  6. LEVOTHYROXINE [Concomitant]
     Active Substance: LEVOTHYROXINE
  7. VITAMIN C [Concomitant]
     Active Substance: ASCORBIC ACID
  8. CARVEDILOL. [Concomitant]
     Active Substance: CARVEDILOL
  9. MULTIVITAMIN W/MINERALS [Concomitant]
     Active Substance: MINERALS\VITAMINS
  10. CALCIUM CARBONATE. [Concomitant]
     Active Substance: CALCIUM CARBONATE

REACTIONS (2)
  - Medication error [None]
  - Skin disorder [None]

NARRATIVE: CASE EVENT DATE: 20140313
